FAERS Safety Report 18980340 (Version 3)
Quarter: 2021Q2

REPORT INFORMATION
  Report Type: Spontaneous
  Country: US (occurrence: US)
  Receive Date: 20210308
  Receipt Date: 20210406
  Transmission Date: 20210717
  Serious: No
  Sender: FDA-Public Use
  Company Number: US-ASTRAZENECA-2021A057453

PATIENT
  Age: 13360 Day
  Sex: Female

DRUGS (12)
  1. KETOTIFEN FUMARATE. [Concomitant]
     Active Substance: KETOTIFEN FUMARATE
     Indication: HYPERSENSITIVITY
     Dosage: 0.035% AS REQUIRED
     Route: 047
  2. FISH OIL [Concomitant]
     Active Substance: FISH OIL
     Indication: BLOOD TRIGLYCERIDES
     Route: 048
  3. DUEXIS [Concomitant]
     Active Substance: FAMOTIDINE\IBUPROFEN
     Indication: ARTHRITIS
     Dosage: 800/26.6MG
     Route: 048
     Dates: start: 2020
  4. MULTIVITAMIN [Concomitant]
     Active Substance: VITAMINS
     Indication: SUPPLEMENTATION THERAPY
     Route: 048
  5. ACZONE [Concomitant]
     Active Substance: DAPSONE
     Indication: ACNE
     Route: 061
  6. IRON [Concomitant]
     Active Substance: IRON
     Indication: MEDICAL DIET
     Route: 048
  7. NIACIN. [Concomitant]
     Active Substance: NIACIN
     Indication: MEDICAL DIET
     Route: 048
     Dates: start: 202012
  8. BIOTIN [Concomitant]
     Active Substance: BIOTIN
     Indication: ALOPECIA
     Route: 048
  9. DICLOFENEC SODIUM [Concomitant]
     Indication: ARTHRITIS
     Route: 061
     Dates: start: 2020
  10. BYDUREON BCISE [Suspect]
     Active Substance: EXENATIDE
     Indication: TYPE 2 DIABETES MELLITUS
     Route: 058
     Dates: start: 20210124
  11. VITAMIN B COMPLEX [Concomitant]
     Active Substance: CYANOCOBALAMIN\DEXPANTHENOL\NIACINAMIDE\PYRIDOXINE HYDROCHLORIDE\RIBOFLAVIN 5^-PHOSPHATE SODIUM\THIAMINE HYDROCHLORIDE\VITAMIN B COMPLEX
     Indication: MEDICAL DIET
     Route: 048
     Dates: start: 202012
  12. CLARITIN [Concomitant]
     Active Substance: LORATADINE
     Indication: HYPERSENSITIVITY
     Dosage: 10.0MG AS REQUIRED
     Route: 048

REACTIONS (8)
  - Injection site mass [Not Recovered/Not Resolved]
  - Injection site pruritus [Unknown]
  - Injection site erythema [Unknown]
  - Device leakage [Unknown]
  - Injection site pain [Recovered/Resolved]
  - Injection site irritation [Unknown]
  - Injection site induration [Unknown]
  - Injection site urticaria [Unknown]

NARRATIVE: CASE EVENT DATE: 20210124
